FAERS Safety Report 19442038 (Version 1)
Quarter: 2021Q2

REPORT INFORMATION
  Report Type: Spontaneous
  Country: US (occurrence: US)
  Receive Date: 20210618
  Receipt Date: 20210618
  Transmission Date: 20210717
  Serious: No
  Sender: FDA-Public Use
  Company Number: None

PATIENT
  Age: 52 Year
  Sex: Female
  Weight: 81 kg

DRUGS (4)
  1. ALBUTEROL INHALER [Concomitant]
     Active Substance: ALBUTEROL
  2. LUMASON [Suspect]
     Active Substance: SULFUR HEXAFLUORIDE
     Indication: SCAN WITH CONTRAST
     Dosage: ?          QUANTITY:1 INJECTION(S);OTHER FREQUENCY:CONTRAST INJECTION;?
     Route: 042
  3. LUMASON [Suspect]
     Active Substance: SULFUR HEXAFLUORIDE
     Indication: MAGNETIC RESONANCE IMAGING HEPATOBILIARY
     Dosage: ?          QUANTITY:1 INJECTION(S);OTHER FREQUENCY:CONTRAST INJECTION;?
     Route: 042
  4. SPIRONOLACTONE 25 MG [Concomitant]
     Active Substance: SPIRONOLACTONE

REACTIONS (10)
  - Dizziness [None]
  - Asthma [None]
  - Contrast media reaction [None]
  - Flushing [None]
  - Dyspnoea [None]
  - Nausea [None]
  - Blood pressure increased [None]
  - Oxygen saturation decreased [None]
  - Cold sweat [None]
  - Tachycardia [None]

NARRATIVE: CASE EVENT DATE: 20210618
